FAERS Safety Report 15564662 (Version 2)
Quarter: 2018Q4

REPORT INFORMATION
  Report Type: Report from Study
  Country: ES (occurrence: ES)
  Receive Date: 20181030
  Receipt Date: 20181121
  Transmission Date: 20190205
  Serious: Yes (Other)
  Sender: FDA-Public Use
  Company Number: ES-AUROBINDO-AUR-APL-2018-052623

PATIENT
  Age: 60 Year
  Sex: Male

DRUGS (1)
  1. PRAMIPEXOLE. [Suspect]
     Active Substance: PRAMIPEXOLE
     Indication: PARKINSON^S DISEASE
     Dosage: 0.7 MILLIGRAM, ONCE A DAY
     Route: 065

REACTIONS (2)
  - Gambling disorder [Recovered/Resolved]
  - Suicidal ideation [Recovered/Resolved]
